FAERS Safety Report 5719332-X (Version None)
Quarter: 2008Q2

REPORT INFORMATION
  Report Type: 
  Country: None (occurrence: None)
  Receive Date: 20080428
  Receipt Date: 20080414
  Transmission Date: 20081010
  Serious: Yes (Hospitalization, Other)
  Sender: FDA-Public Use
  Company Number: US-ELI_LILLY_AND_COMPANY-US200711006710

PATIENT
  Sex: Male

DRUGS (6)
  1. FORTEO [Suspect]
     Indication: COMPRESSION FRACTURE
     Dosage: UNK, UNK
     Dates: start: 20030701, end: 20050701
  2. FORTEO [Suspect]
     Dosage: UNK, UNK
     Dates: start: 20061001
  3. FORTEO [Suspect]
     Dosage: UNK, UNK
  4. RITUXAN [Concomitant]
     Dates: start: 20030701, end: 20040201
  5. PREDNISONE [Concomitant]
     Indication: LYMPHOMA
     Dates: end: 20071102
  6. ACTONEL [Concomitant]
     Dates: start: 20050101, end: 20060101

REACTIONS (10)
  - BONE DENSITY DECREASED [None]
  - DYSPNOEA [None]
  - HOSPITALISATION [None]
  - LYMPHOCYTIC LEUKAEMIA [None]
  - LYMPHOMA [None]
  - MALAISE [None]
  - PLEURAL EFFUSION [None]
  - SPINAL FRACTURE [None]
  - THORACIC VERTEBRAL FRACTURE [None]
  - WOUND [None]
